FAERS Safety Report 5760083-3 (Version None)
Quarter: 2008Q2

REPORT INFORMATION
  Report Type: 
  Country: None (occurrence: None)
  Receive Date: 20080605
  Receipt Date: 20080529
  Transmission Date: 20081010
  Serious: Yes (Hospitalization)
  Sender: FDA-Public Use
  Company Number: JP-AVENTIS-200811690JP

PATIENT
  Age: 77 Year
  Sex: Female

DRUGS (6)
  1. AMARYL [Suspect]
     Indication: DIABETES MELLITUS
     Route: 048
     Dates: start: 20050101, end: 20080515
  2. ASPIRIN [Concomitant]
  3. MICARDIS [Concomitant]
  4. MEVALOTIN [Concomitant]
  5. LOCHOL                             /01224501/ [Concomitant]
  6. OLMETEC [Concomitant]

REACTIONS (6)
  - ANOREXIA [None]
  - DISSEMINATED INTRAVASCULAR COAGULATION [None]
  - FATIGUE [None]
  - GLOSSITIS [None]
  - PANCYTOPENIA [None]
  - PERNICIOUS ANAEMIA [None]
